FAERS Safety Report 24992845 (Version 1)
Quarter: 2025Q1

REPORT INFORMATION
  Report Type: Spontaneous
  Country: US (occurrence: US)
  Receive Date: 20250221
  Receipt Date: 20250221
  Transmission Date: 20250409
  Serious: Yes (Other)
  Sender: SANOFI AVENTIS
  Company Number: US-MLMSERVICE-20240517-PI068068-00249-1

PATIENT
  Age: 38 Year
  Sex: Female

DRUGS (9)
  1. OXALIPLATIN [Suspect]
     Active Substance: OXALIPLATIN
     Indication: Metastases to peritoneum
     Dosage: UNK, QOW
  2. OXALIPLATIN [Suspect]
     Active Substance: OXALIPLATIN
     Indication: Hepatocellular carcinoma
  3. GEMCITABINE [Concomitant]
     Active Substance: GEMCITABINE
     Indication: Metastases to peritoneum
     Dosage: UNK, QOW
  4. GEMCITABINE [Concomitant]
     Active Substance: GEMCITABINE
     Indication: Hepatocellular carcinoma
  5. GEMCITABINE [Concomitant]
     Active Substance: GEMCITABINE
  6. GEMCITABINE [Concomitant]
     Active Substance: GEMCITABINE
  7. TENOFOVIR ALAFENAMIDE [Concomitant]
     Active Substance: TENOFOVIR ALAFENAMIDE
     Indication: Chronic hepatitis B
  8. LENVATINIB [Concomitant]
     Active Substance: LENVATINIB
     Indication: Hepatocellular carcinoma
  9. LENVATINIB [Concomitant]
     Active Substance: LENVATINIB
     Indication: Metastases to peritoneum

REACTIONS (3)
  - Neurotoxicity [Recovering/Resolving]
  - Neuropathy peripheral [Recovering/Resolving]
  - Peroneal nerve palsy [Recovering/Resolving]
